FAERS Safety Report 9513037 (Version 3)
Quarter: 2014Q1

REPORT INFORMATION
  Report Type: Spontaneous
  Country: US (occurrence: US)
  Receive Date: 20130910
  Receipt Date: 20140327
  Transmission Date: 20141002
  Serious: No
  Sender: FDA-Public Use
  Company Number: US-PFIZER INC-2013256385

PATIENT
  Age: 81 Year
  Sex: Female
  Weight: 52.61 kg

DRUGS (1)
  1. FLECTOR [Suspect]
     Indication: PAIN IN EXTREMITY
     Dosage: 1 DF, 2X/DAY
     Dates: start: 201308

REACTIONS (1)
  - Drug ineffective [Unknown]
